FAERS Safety Report 5728198-3 (Version None)
Quarter: 2008Q2

REPORT INFORMATION
  Report Type: 
  Country: None (occurrence: None)
  Receive Date: 20080501
  Receipt Date: 20080421
  Transmission Date: 20081010
  Serious: Yes (Hospitalization)
  Sender: FDA-Public Use
  Company Number: ALK_00583_2008

PATIENT

DRUGS (1)
  1. VIVITROL [Suspect]
     Dosage: (380 MG)

REACTIONS (2)
  - ADVERSE EVENT [None]
  - INTERCEPTED MEDICATION ERROR [None]
